FAERS Safety Report 6326479-6 (Version None)
Quarter: 2009Q3

REPORT INFORMATION
  Report Type: 
  Country: None (occurrence: None)
  Receive Date: 20090821
  Receipt Date: 20090813
  Transmission Date: 20100115
  Serious: Yes (Other)
  Sender: FDA-Public Use
  Company Number: 2009EU002916

PATIENT
  Age: 13 Year
  Sex: Male

DRUGS (11)
  1. TACROLIMUS [Suspect]
     Indication: HEART TRANSPLANT
     Dosage: D
  2. PREDNISOLONE [Suspect]
     Indication: HEART TRANSPLANT
     Dosage: D
  3. CYCLOPHOSPHAMIDE [Concomitant]
  4. VINCRISTINE [Concomitant]
  5. DEXRAZOXANE (DEXRAZOXANE) [Concomitant]
  6. THIOGUANINE [Concomitant]
  7. RITUXIMAB (RITUXIMAB) [Concomitant]
  8. CYTARABINE [Concomitant]
  9. DOXORUBICIN HCL [Concomitant]
  10. METHOTREXATE [Concomitant]
  11. CYCLOSPORINE [Concomitant]

REACTIONS (12)
  - BURKITT'S LYMPHOMA [None]
  - CENTRAL LINE INFECTION [None]
  - EPSTEIN-BARR VIRAEMIA [None]
  - EPSTEIN-BARR VIRUS ASSOCIATED LYMPHOPROLIFERATIVE DISORDER [None]
  - HAEMODIALYSIS [None]
  - MUSCLE CONTRACTIONS INVOLUNTARY [None]
  - PNEUMONITIS [None]
  - RENAL FAILURE [None]
  - SEPSIS [None]
  - STAPHYLOCOCCAL BACTERAEMIA [None]
  - TIC [None]
  - TUMOUR LYSIS SYNDROME [None]
